FAERS Safety Report 15023436 (Version 9)
Quarter: 2021Q1

REPORT INFORMATION
  Report Type: Report from Study
  Country: JP (occurrence: JP)
  Receive Date: 20180618
  Receipt Date: 20210112
  Transmission Date: 20210419
  Serious: Yes (Hospitalization)
  Sender: FDA-Public Use
  Company Number: JP-CELGENEUS-JPN-20180605136

PATIENT
  Age: 52 Year
  Sex: Female
  Weight: 56.6 kg

DRUGS (43)
  1. ESCITALOPRAM OXALATE. [Concomitant]
     Active Substance: ESCITALOPRAM OXALATE
     Indication: INSOMNIA
     Route: 065
     Dates: start: 201511
  2. EPERISONE HYDROCHLORIDE [Concomitant]
     Active Substance: EPERISONE HYDROCHLORIDE
     Indication: INTERCOSTAL NEURALGIA
     Route: 048
     Dates: start: 201606
  3. VITAMIN A + E [Concomitant]
     Indication: INTERCOSTAL NEURALGIA
     Route: 065
     Dates: start: 201606
  4. KETOPROFEN. [Concomitant]
     Active Substance: KETOPROFEN
     Indication: PERIPHERAL SENSORY NEUROPATHY
     Route: 061
     Dates: start: 20170404
  5. REBAMIPIDE [Concomitant]
     Active Substance: REBAMIPIDE
     Indication: GASTRITIS PROPHYLAXIS
     Route: 048
     Dates: start: 20180610, end: 20180614
  6. DAPTOMYCIN. [Concomitant]
     Active Substance: DAPTOMYCIN
     Indication: PRODUCT USED FOR UNKNOWN INDICATION
     Route: 041
     Dates: start: 20180612, end: 20180612
  7. CLONAZEPAM. [Concomitant]
     Active Substance: CLONAZEPAM
     Indication: DEPRESSION
     Route: 048
  8. MPDL3280A (ATEZOLIZUMAB) [Suspect]
     Active Substance: ATEZOLIZUMAB
     Indication: BREAST CANCER METASTATIC
     Dosage: 1200 MILLIGRAM/SQ. METER
     Route: 041
     Dates: start: 20170206, end: 20180509
  9. BETAMETHASONE BUTYRATE PROPIONATE [Concomitant]
     Active Substance: BETAMETHASONE BUTYRATE PROPIONATE
     Indication: RASH
     Dosage: .05 PERCENT
     Route: 061
     Dates: start: 20170307
  10. CELECOXIB. [Concomitant]
     Active Substance: CELECOXIB
     Indication: PERIPHERAL SENSORY NEUROPATHY
     Route: 048
     Dates: start: 20170411
  11. SEKICODE [Concomitant]
     Indication: COUGH
     Route: 048
     Dates: start: 20170926, end: 20180608
  12. OXYCODONE HYDROCHLORIDE. [Concomitant]
     Active Substance: OXYCODONE HYDROCHLORIDE
     Indication: OEDEMA
     Route: 048
     Dates: start: 20180327
  13. DIPHENHYDRAMINE. [Concomitant]
     Active Substance: DIPHENHYDRAMINE
     Indication: RASH
     Route: 061
     Dates: start: 20180615
  14. IODINE. [Concomitant]
     Active Substance: IODINE
     Indication: NAIL APLASIA
     Route: 065
  15. MIRTAZAPINE. [Concomitant]
     Active Substance: MIRTAZAPINE
     Indication: DEPRESSION
     Route: 048
     Dates: start: 20181102
  16. FLUNITRAZEPAM [Concomitant]
     Active Substance: FLUNITRAZEPAM
     Route: 065
     Dates: start: 20180919
  17. THYROID [Concomitant]
     Active Substance: LEVOTHYROXINE\LIOTHYRONINE
     Indication: HYPOTHYROIDISM
     Route: 048
     Dates: start: 20170410
  18. CINAL [Concomitant]
     Indication: CHLOASMA
     Route: 048
     Dates: start: 20170522
  19. SULFAMETHOXAZOLE W/TRIMETHOPRIM [Concomitant]
     Active Substance: SULFAMETHOXAZOLE\TRIMETHOPRIM
     Indication: PNEUMOCYSTIS JIROVECII PNEUMONIA
     Route: 065
     Dates: start: 20180611, end: 20180613
  20. LINACLOTIDE [Concomitant]
     Active Substance: LINACLOTIDE
     Indication: CONSTIPATION
     Route: 048
     Dates: start: 20181031
  21. DIQUAFOSOL TETRASODIUM [Concomitant]
     Active Substance: DIQUAFOSOL TETRASODIUM
     Indication: PRODUCT USED FOR UNKNOWN INDICATION
     Route: 047
     Dates: start: 20170814, end: 20180911
  22. MAGNESIUM OXIDE. [Concomitant]
     Active Substance: MAGNESIUM OXIDE
     Indication: CONSTIPATION
     Route: 048
     Dates: start: 20171030
  23. METOCLOPRAMIDE. [Concomitant]
     Active Substance: METOCLOPRAMIDE
     Indication: NAUSEA
     Route: 065
     Dates: start: 20171031, end: 20180829
  24. CYANOCOBALAMIN. [Concomitant]
     Active Substance: CYANOCOBALAMIN
     Indication: ASTHENOPIA
     Route: 047
     Dates: start: 20180711
  25. POVIDONE?IODINE. [Concomitant]
     Active Substance: POVIDONE-IODINE
     Indication: NAIL APLASIA
     Route: 065
     Dates: start: 20180806
  26. SODIUM HYALURONATE [Concomitant]
     Active Substance: HYALURONATE SODIUM
     Indication: PRODUCT USED FOR UNKNOWN INDICATION
     Route: 047
     Dates: start: 20180912
  27. MUCOPOLYSACCHARIDE POLYSULFURIC ACID ESTER [Concomitant]
     Indication: RASH
     Route: 051
     Dates: start: 20170307
  28. FUROSIMIDE [Concomitant]
     Active Substance: FUROSEMIDE
     Indication: OEDEMA
     Route: 065
     Dates: start: 20170522
  29. ABRAXANE [Suspect]
     Active Substance: PACLITAXEL
     Indication: BREAST CANCER METASTATIC
     Dosage: 100 MILLIGRAM/SQ. METER
     Route: 041
     Dates: start: 20170206, end: 20180517
  30. MECOBALAMIN [Concomitant]
     Active Substance: METHYLCOBALAMIN
     Indication: INTERCOSTAL NEURALGIA
     Route: 065
     Dates: start: 201606
  31. POSTERISAN FORTE [Concomitant]
     Active Substance: LIDOCAINE
     Indication: PROCTALGIA
     Route: 061
     Dates: start: 20170418
  32. SPIRONOLACTONE. [Concomitant]
     Active Substance: SPIRONOLACTONE
     Indication: OEDEMA
     Route: 048
     Dates: start: 20170814
  33. ZOLPIDEM TARTRATE. [Concomitant]
     Active Substance: ZOLPIDEM TARTRATE
     Indication: INSOMNIA
     Route: 048
     Dates: start: 20171024, end: 20181102
  34. OXYCODONE [Concomitant]
     Active Substance: OXYCODONE
     Indication: OEDEMA
     Route: 048
     Dates: start: 20180411
  35. SOLACET F [Concomitant]
     Active Substance: CALCIUM CHLORIDE\POTASSIUM CHLORIDE\SODIUM ACETATE\SODIUM CHLORIDE
     Indication: NON-CARDIAC CHEST PAIN
     Route: 041
     Dates: start: 20180802, end: 20180802
  36. UREA. [Concomitant]
     Active Substance: UREA
     Indication: NAIL APLASIA
     Route: 065
     Dates: start: 20180806
  37. OLIVE OIL [Concomitant]
     Active Substance: OLIVE OIL
     Indication: RASH
     Route: 065
     Dates: start: 20180613
  38. FEXOFENADINE HYDROCHLORIDE. [Concomitant]
     Active Substance: FEXOFENADINE HYDROCHLORIDE
     Indication: RASH
     Route: 048
     Dates: start: 20170210
  39. SENNOSIDES. [Concomitant]
     Active Substance: SENNOSIDES
     Indication: CONSTIPATION
     Route: 048
     Dates: start: 201511
  40. VONOPRAZAN FUMARATE [Concomitant]
     Active Substance: VONOPRAZAN FUMARATE
     Indication: GASTRITIS
     Route: 048
     Dates: start: 20151208
  41. FLUNITRAZEPAM [Concomitant]
     Active Substance: FLUNITRAZEPAM
     Indication: INSOMNIA
     Route: 065
     Dates: start: 201511, end: 20180926
  42. CEFCAPENE PIVOXIL HYDROCHLORIDE [Concomitant]
     Active Substance: CEFCAPENE PIVOXIL HYDROCHLORIDE
     Indication: LYMPHADENITIS
     Route: 048
     Dates: start: 20180606, end: 20180611
  43. MIRTAZAPINE. [Concomitant]
     Active Substance: MIRTAZAPINE
     Route: 048
     Dates: start: 20181114

REACTIONS (2)
  - Polyarthritis [Recovered/Resolved]
  - Proctalgia [Not Recovered/Not Resolved]

NARRATIVE: CASE EVENT DATE: 20170418
